FAERS Safety Report 7529250-2 (Version None)
Quarter: 2011Q2

REPORT INFORMATION
  Report Type: 
  Country: None (occurrence: None)
  Receive Date: 20110607
  Receipt Date: 20110531
  Transmission Date: 20111010
  Serious: Yes (Death, Hospitalization)
  Sender: FDA-Public Use
  Company Number: DE-PFIZER INC-2011106215

PATIENT
  Age: 90 Year
  Sex: Female
  Weight: 56 kg

DRUGS (13)
  1. PANTOPRAZOLE [Concomitant]
     Indication: PROPHYLAXIS AGAINST GASTROINTESTINAL ULCER
     Dosage: 40 MG, ONCE
     Route: 048
     Dates: end: 20110207
  2. FENTANYL [Concomitant]
     Indication: BONE PAIN
     Dosage: RATE OF RELEASE: 25A?G/H, 4.125MG, ONCE EVERY THIRD DAY
     Route: 062
     Dates: end: 20110207
  3. ASPIRIN [Concomitant]
     Indication: CORONARY ARTERY DISEASE
     Dosage: 100 MG, ONCE
     Route: 048
     Dates: end: 20110207
  4. NORVASC [Concomitant]
     Indication: HYPERTENSION
     Dosage: 10 MG, ONCE
     Route: 048
     Dates: end: 20110207
  5. UNASYN [Suspect]
     Indication: TRACHEOBRONCHITIS
     Dosage: 750 MG, TWICE
     Route: 048
     Dates: start: 20101211, end: 20101221
  6. HUMALOG [Concomitant]
     Indication: TYPE 2 DIABETES MELLITUS
     Dosage: 14 IU, ONCE
     Route: 058
     Dates: end: 20110207
  7. ISOSORBIDE MONONITRATE [Concomitant]
     Indication: CORONARY ARTERY DISEASE
     Dosage: 40 MG, TWICE
     Route: 048
     Dates: end: 20110207
  8. RAMIPRIL [Concomitant]
     Indication: HYPERTENSION
     Dosage: 5 MG, ONCE
     Route: 048
     Dates: end: 20110207
  9. TORSEMIDE [Concomitant]
     Indication: HYPERTENSION
     Dosage: 10 MG, ONCE
     Route: 048
     Dates: end: 20110207
  10. ISOSORBIDE DINITRATE [Concomitant]
     Indication: CORONARY ARTERY DISEASE
     Dosage: 20 MG, TWICE
     Route: 048
     Dates: end: 20110207
  11. METRONIDAZOLE [Suspect]
     Indication: CLOSTRIDIAL INFECTION
     Dosage: 500 MG, THREE TIMES
     Route: 048
     Dates: start: 20101228, end: 20110109
  12. METRONIDAZOLE [Suspect]
     Dosage: UNK
     Dates: start: 20110201, end: 20110207
  13. RULID [Suspect]
     Indication: TRACHEOBRONCHITIS
     Dosage: 300 MG, ONCE
     Route: 048
     Dates: start: 20101211, end: 20101221

REACTIONS (1)
  - CLOSTRIDIUM DIFFICILE COLITIS [None]
